FAERS Safety Report 23397035 (Version 1)
Quarter: 2024Q1

REPORT INFORMATION
  Report Type: Spontaneous
  Country: CY (occurrence: CY)
  Receive Date: 20240112
  Receipt Date: 20240112
  Transmission Date: 20240410
  Serious: Yes (Other)
  Sender: FDA-Public Use
  Company Number: CY-ROCHE-3470505

PATIENT
  Age: 38 Year
  Sex: Female
  Weight: 74 kg

DRUGS (17)
  1. FEMARA [Suspect]
     Active Substance: LETROZOLE
     Indication: HER2 positive breast cancer
     Dosage: 2.5 MG, QD
     Route: 048
     Dates: start: 20210724
  2. FEMARA [Suspect]
     Active Substance: LETROZOLE
     Dosage: UNK, MOST RECENT DOSE PRIOR TO AE
     Route: 065
     Dates: start: 20230112
  3. PACLITAXEL [Suspect]
     Active Substance: PACLITAXEL
     Indication: HER2 positive breast cancer
     Dosage: 80 MG/M2, QW
     Route: 042
     Dates: start: 20171222
  4. PACLITAXEL [Suspect]
     Active Substance: PACLITAXEL
     Dosage: UNK, MOST RECENT DOSE PRIOR TO AE
     Route: 065
     Dates: start: 20180516
  5. CAPECITABINE [Suspect]
     Active Substance: CAPECITABINE
     Indication: HER2 positive breast cancer
     Dosage: 4000 MG, (0.5 UNITS PER DAY)
     Route: 048
     Dates: start: 20221219
  6. HERCEPTIN [Suspect]
     Active Substance: TRASTUZUMAB
     Indication: HER2 positive breast cancer
     Dosage: 6 MG/KG, Q3W
     Route: 042
     Dates: start: 20171229
  7. PERJETA [Suspect]
     Active Substance: PERTUZUMAB
     Indication: HER2 positive breast cancer
     Dosage: 420 MG, QW
     Route: 042
     Dates: start: 20171228
  8. GOSERELIN [Suspect]
     Active Substance: GOSERELIN
     Indication: HER2 positive breast cancer
     Dosage: 3.6 MG
     Route: 058
     Dates: start: 20180806
  9. GOSERELIN [Suspect]
     Active Substance: GOSERELIN
     Dosage: UNK, MOST RECENT DOSE PRIOR TO AE
     Route: 065
     Dates: start: 20230112
  10. NOLVADEX [Suspect]
     Active Substance: TAMOXIFEN CITRATE
     Indication: HER2 positive breast cancer
     Dosage: 20 MG, QD
     Route: 048
     Dates: start: 20180530
  11. NOLVADEX [Suspect]
     Active Substance: TAMOXIFEN CITRATE
     Dosage: UNK, MOST RECENT DOSE PRIOR TO AE
     Route: 065
     Dates: start: 20210723
  12. TAXOL [Suspect]
     Active Substance: PACLITAXEL
     Indication: HER2 positive breast cancer
     Dosage: 80 MG/M2, QW (MOST RECENT DOSE PRIOR TO AE 16/MAY/2018)
     Route: 042
     Dates: start: 20171222
  13. XELODA [Suspect]
     Active Substance: CAPECITABINE
     Indication: HER2 positive breast cancer
     Dosage: 4000 MG
     Route: 048
     Dates: start: 20221219
  14. METOCLOPRAMIDE [Concomitant]
     Active Substance: METOCLOPRAMIDE
     Indication: Nausea
     Dosage: UNK
     Route: 065
     Dates: start: 20210830
  15. OMEPRAZOLE [Concomitant]
     Active Substance: OMEPRAZOLE
     Indication: Product used for unknown indication
     Dosage: UNK
     Route: 065
     Dates: start: 20210723
  16. SOLPADEIN [Concomitant]
     Indication: Headache
     Dosage: UNK
     Route: 065
     Dates: start: 20210719
  17. ATACAND [Concomitant]
     Active Substance: CANDESARTAN CILEXETIL
     Indication: Hypertension
     Dosage: UNK
     Route: 065
     Dates: start: 20210617

REACTIONS (1)
  - Pneumonitis [Recovering/Resolving]

NARRATIVE: CASE EVENT DATE: 20231102
